FAERS Safety Report 9243591 (Version 2)
Quarter: 2013Q2

REPORT INFORMATION
  Report Type: Spontaneous
  Country: US (occurrence: US)
  Receive Date: 20130422
  Receipt Date: 20130502
  Transmission Date: 20140414
  Serious: Yes (Death, Hospitalization, Other)
  Sender: FDA-Public Use
  Company Number: US-009507513-1304USA008682

PATIENT
  Age: 62 Year
  Sex: Female

DRUGS (1)
  1. TEMODAR [Suspect]
     Dosage: 140 MG, TID
     Route: 048
     Dates: start: 201304, end: 201304

REACTIONS (1)
  - Gliosarcoma [Fatal]
